FAERS Safety Report 25411501 (Version 1)
Quarter: 2025Q2

REPORT INFORMATION
  Report Type: Spontaneous
  Country: IT (occurrence: IT)
  Receive Date: 20250609
  Receipt Date: 20250609
  Transmission Date: 20250717
  Serious: Yes (Other)
  Sender: TEVA
  Company Number: None

PATIENT
  Age: 75 Year
  Sex: Male
  Weight: 55 kg

DRUGS (2)
  1. FLUOROURACIL [Suspect]
     Active Substance: FLUOROURACIL
     Indication: Adenocarcinoma gastric
     Dosage: 388.80 MG IN PUSH + 2332.80 MG IN CONTINUOUS INFUSION 46 HOURS
     Route: 042
     Dates: start: 20240318, end: 20250430
  2. OXALIPLATIN [Suspect]
     Active Substance: OXALIPLATIN
     Indication: Adenocarcinoma gastric
     Dosage: 111 MG TOTAL ON 03/18/2024 IN FLOT NEOADJ REGIMEN, 96 MG TOTAL IN FOLFOX REGIMEN FOR ADVANCED DIS...
     Route: 042
     Dates: start: 20250319, end: 20250319

REACTIONS (1)
  - Thrombocytopenia [Recovering/Resolving]

NARRATIVE: CASE EVENT DATE: 20250311
